FAERS Safety Report 26150699 (Version 1)
Quarter: 2025Q4

REPORT INFORMATION
  Report Type: Spontaneous
  Country: US (occurrence: US)
  Receive Date: 20251212
  Receipt Date: 20251212
  Transmission Date: 20260118
  Serious: No
  Sender: ALCON
  Company Number: US-ALCON LABORATORIES-ALC2025US006202

PATIENT

DRUGS (2)
  1. ACOLTREMON [Suspect]
     Active Substance: ACOLTREMON
     Indication: Product used for unknown indication
     Dosage: ONE DROP IN THE RIGHT EYE TWICE
     Route: 047
     Dates: start: 20251001, end: 20251024
  2. TAFLUPROST [Concomitant]
     Active Substance: TAFLUPROST
     Indication: Glaucoma
     Dosage: ONCE DAILY AT NIGHT,
     Route: 065

REACTIONS (3)
  - Ocular discomfort [Recovered/Resolved]
  - Eye pain [Recovered/Resolved]
  - Eye irritation [Recovered/Resolved]
